FAERS Safety Report 24623623 (Version 1)
Quarter: 2024Q4

REPORT INFORMATION
  Report Type: Spontaneous
  Country: AT (occurrence: AT)
  Receive Date: 20241115
  Receipt Date: 20241115
  Transmission Date: 20250114
  Serious: Yes (Other)
  Sender: ALEXION PHARMACEUTICALS
  Company Number: AT-ASTRAZENECA-202410GLO011893AT

PATIENT
  Age: 66 Year
  Weight: 170 kg

DRUGS (86)
  1. FASLODEX [Suspect]
     Active Substance: FULVESTRANT
     Indication: Breast cancer
     Dosage: 500 MILLIGRAM
  2. FASLODEX [Suspect]
     Active Substance: FULVESTRANT
     Dosage: 500 MILLIGRAM
  3. FASLODEX [Suspect]
     Active Substance: FULVESTRANT
     Dosage: 500 MILLIGRAM
  4. FASLODEX [Suspect]
     Active Substance: FULVESTRANT
     Dosage: 500 MILLIGRAM
  5. LORAZEPAM [Concomitant]
     Active Substance: LORAZEPAM
  6. LORAZEPAM [Concomitant]
     Active Substance: LORAZEPAM
  7. DROPERIDOL [Concomitant]
     Active Substance: DROPERIDOL
  8. KADCYLA [Suspect]
     Active Substance: ADO-TRASTUZUMAB EMTANSINE
     Indication: Breast cancer metastatic
     Dosage: 270 MILLIGRAM, Q3W
  9. KADCYLA [Suspect]
     Active Substance: ADO-TRASTUZUMAB EMTANSINE
     Dosage: 270 MILLIGRAM, Q3W
  10. TAXOTERE [Suspect]
     Active Substance: DOCETAXEL
     Indication: Breast cancer metastatic
     Dosage: 740 MILLIGRAM
  11. TAXOTERE [Suspect]
     Active Substance: DOCETAXEL
     Dosage: 740 MILLIGRAM
     Route: 065
  12. POLYETHYLENE GLYCOL 3350\POTASSIUM CHLORIDE\SODIUM BICARBONATE\SODIUM [Concomitant]
     Active Substance: POLYETHYLENE GLYCOL 3350\POTASSIUM CHLORIDE\SODIUM BICARBONATE\SODIUM CHLORIDE
  13. DOXIL [Suspect]
     Active Substance: DOXORUBICIN HYDROCHLORIDE
     Indication: Breast cancer metastatic
     Dosage: 104.4 MILLIGRAM, QD
  14. DOXIL [Suspect]
     Active Substance: DOXORUBICIN HYDROCHLORIDE
     Dosage: 104.4 MILLIGRAM, QD
  15. BETAMETHASONE DIPROPIONATE [Concomitant]
     Active Substance: BETAMETHASONE DIPROPIONATE
     Dosage: UNK
  16. ZOFRAN [Concomitant]
     Active Substance: ONDANSETRON HYDROCHLORIDE
     Dosage: UNK
  17. PREGABALIN [Concomitant]
     Active Substance: PREGABALIN
     Dosage: UNK
  18. NAVELBINE [Suspect]
     Active Substance: VINORELBINE TARTRATE
     Indication: Breast cancer metastatic
     Dosage: 45 MILLIGRAM, QW
  19. NAVELBINE [Suspect]
     Active Substance: VINORELBINE TARTRATE
     Dosage: 45 MILLIGRAM, QW
  20. NAVELBINE [Suspect]
     Active Substance: VINORELBINE TARTRATE
     Dosage: 45 MILLIGRAM, QW
  21. NAVELBINE [Suspect]
     Active Substance: VINORELBINE TARTRATE
     Dosage: 45 MILLIGRAM, QW
  22. Paspertin [Concomitant]
  23. LEVOFLOXACIN [Concomitant]
     Active Substance: LEVOFLOXACIN
  24. LEVOFLOXACIN [Concomitant]
     Active Substance: LEVOFLOXACIN
  25. TRASTUZUMAB [Suspect]
     Active Substance: TRASTUZUMAB
     Indication: HER2 positive breast cancer
  26. TRASTUZUMAB [Suspect]
     Active Substance: TRASTUZUMAB
     Indication: Breast cancer metastatic
  27. ACETAMINOPHEN [Suspect]
     Active Substance: ACETAMINOPHEN
     Dosage: UNK
  28. ACETAMINOPHEN [Suspect]
     Active Substance: ACETAMINOPHEN
     Dosage: UNK
     Route: 065
  29. LIDOCAINE [Concomitant]
     Active Substance: LIDOCAINE
  30. SALINE [Concomitant]
     Active Substance: SODIUM CHLORIDE
  31. XGEVA [Concomitant]
     Active Substance: DENOSUMAB
  32. CAPECITABINE [Suspect]
     Active Substance: CAPECITABINE
     Indication: Breast cancer
     Dosage: 300 MILLIGRAM, QD
  33. CAPECITABINE [Suspect]
     Active Substance: CAPECITABINE
     Dosage: 300 MILLIGRAM, QD
  34. Paracodin [Concomitant]
  35. PONVERIDOL [Concomitant]
  36. POTASSIUM CHLORIDE [Concomitant]
     Active Substance: POTASSIUM CHLORIDE
  37. TRASTUZUMAB DERUXTECAN [Suspect]
     Active Substance: TRASTUZUMAB DERUXTECAN
     Indication: Breast cancer metastatic
     Dosage: UNK
  38. TRASTUZUMAB DERUXTECAN [Suspect]
     Active Substance: TRASTUZUMAB DERUXTECAN
     Dosage: UNK
  39. LOVENOX [Concomitant]
     Active Substance: ENOXAPARIN SODIUM
  40. FUROSEMIDE [Concomitant]
     Active Substance: FUROSEMIDE
  41. NERIFORTE [Concomitant]
  42. PERTUZUMAB [Concomitant]
     Active Substance: PERTUZUMAB
  43. PERTUZUMAB [Concomitant]
     Active Substance: PERTUZUMAB
  44. Kalioral [Concomitant]
  45. Novalgin [Concomitant]
  46. TAZOBACTAM [Concomitant]
     Active Substance: TAZOBACTAM
  47. TAZOBACTAM [Concomitant]
     Active Substance: TAZOBACTAM
  48. BETAISODONA [Concomitant]
     Active Substance: POVIDONE-IODINE
  49. SILICON [Concomitant]
     Active Substance: SILICON
  50. ONDANSETRON [Concomitant]
     Active Substance: ONDANSETRON
  51. ALPRAZOLAM [Concomitant]
     Active Substance: ALPRAZOLAM
  52. FENTANYL [Concomitant]
     Active Substance: FENTANYL
  53. FENTANYL [Concomitant]
     Active Substance: FENTANYL
  54. DEXAMETHASONE [Concomitant]
     Active Substance: DEXAMETHASONE
  55. CALCIUM CARBONATE\CHOLECALCIFEROL [Concomitant]
     Active Substance: CALCIUM CARBONATE\CHOLECALCIFEROL
  56. ELOMEL [Concomitant]
  57. HYDROMORPHONE HYDROCHLORIDE [Concomitant]
     Active Substance: HYDROMORPHONE HYDROCHLORIDE
  58. EDOXABAN TOSYLATE [Concomitant]
     Active Substance: EDOXABAN TOSYLATE
  59. BUTYLSCOPOLAMINE BROMIDE [Concomitant]
     Active Substance: BUTYLSCOPOLAMINE BROMIDE
  60. OLIVE OIL [Concomitant]
     Active Substance: OLIVE OIL
  61. EUTHYROX [Concomitant]
     Active Substance: LEVOTHYROXINE SODIUM
  62. Oleovit [Concomitant]
  63. PANTOPRAZOLE SODIUM [Concomitant]
     Active Substance: PANTOPRAZOLE SODIUM
  64. AMOXICILLIN [Concomitant]
     Active Substance: AMOXICILLIN
  65. Leukichtan [Concomitant]
  66. TRAZODONE HYDROCHLORIDE [Concomitant]
     Active Substance: TRAZODONE HYDROCHLORIDE
  67. Oleovit [Concomitant]
  68. DRONABINOL [Concomitant]
     Active Substance: DRONABINOL
  69. Halset [Concomitant]
  70. SCOTTOPECT [Concomitant]
  71. LORAZEPAM [Concomitant]
     Active Substance: LORAZEPAM
  72. TUCATINIB [Suspect]
     Active Substance: TUCATINIB
     Indication: Breast cancer metastatic
     Route: 065
  73. TUCATINIB [Suspect]
     Active Substance: TUCATINIB
  74. TUCATINIB [Suspect]
     Active Substance: TUCATINIB
     Route: 065
  75. TUCATINIB [Suspect]
     Active Substance: TUCATINIB
  76. LACTULOSE [Concomitant]
     Active Substance: LACTULOSE
  77. LOVENOX [Concomitant]
     Active Substance: ENOXAPARIN SODIUM
  78. CARBOXYMETHYLCELLULOSE SODIUM [Suspect]
     Active Substance: CARBOXYMETHYLCELLULOSE SODIUM
  79. VITAMIN C [Concomitant]
     Active Substance: ASCORBIC ACID
  80. TYKERB [Suspect]
     Active Substance: LAPATINIB DITOSYLATE
     Indication: Breast cancer
     Dosage: 100 MILLIGRAM, QD
  81. TYKERB [Suspect]
     Active Substance: LAPATINIB DITOSYLATE
     Dosage: 100 MILLIGRAM, QD
  82. PANTOPRAZOLE [Concomitant]
     Active Substance: PANTOPRAZOLE
  83. Motrim [Concomitant]
  84. MORPHINE [Concomitant]
     Active Substance: MORPHINE
  85. DENOSUMAB [Suspect]
     Active Substance: DENOSUMAB
     Indication: Breast cancer metastatic
     Dosage: 120 MILLIGRAM, Q4W
  86. DENOSUMAB [Suspect]
     Active Substance: DENOSUMAB
     Dosage: 120 MILLIGRAM, Q4W

REACTIONS (16)
  - Sepsis [Recovered/Resolved]
  - Nausea [Recovered/Resolved]
  - Candida infection [Recovered/Resolved]
  - Fatigue [Not Recovered/Not Resolved]
  - Vascular device infection [Recovered/Resolved]
  - Intentional product use issue [Unknown]
  - Streptococcal sepsis [Recovered/Resolved]
  - Varicose vein [Not Recovered/Not Resolved]
  - Pleural effusion [Recovered/Resolved]
  - Vomiting [Recovered/Resolved]
  - Pseudomonal sepsis [Recovered/Resolved]
  - C-reactive protein increased [Not Recovered/Not Resolved]
  - Intentional product use issue [Unknown]
  - Brain oedema [Not Recovered/Not Resolved]
  - Back pain [Recovered/Resolved]
  - Metastases to lymph nodes [Not Recovered/Not Resolved]
